FAERS Safety Report 24046217 (Version 1)
Quarter: 2024Q3

REPORT INFORMATION
  Report Type: Spontaneous
  Country: US (occurrence: US)
  Receive Date: 20240703
  Receipt Date: 20240703
  Transmission Date: 20241017
  Serious: Yes (Hospitalization, Other)
  Sender: AMARIN
  Company Number: US-Amarin Pharma  Inc-2024AMR000329

PATIENT
  Sex: Female

DRUGS (1)
  1. VASCEPA [Suspect]
     Active Substance: ICOSAPENT ETHYL
     Indication: Cerebrovascular accident prophylaxis
     Dosage: UNKNOWN
     Route: 065

REACTIONS (2)
  - Syncope [Unknown]
  - Neuropathy peripheral [Not Recovered/Not Resolved]
